FAERS Safety Report 15692757 (Version 3)
Quarter: 2019Q1

REPORT INFORMATION
  Report Type: Report from Study
  Country: CA (occurrence: CA)
  Receive Date: 20181206
  Receipt Date: 20190126
  Transmission Date: 20190417
  Serious: Yes (Other)
  Sender: FDA-Public Use
  Company Number: CA-AMGEN-CANSL2018172904

PATIENT
  Age: 75 Year
  Sex: Female

DRUGS (40)
  1. RIVAROXABAN [Concomitant]
     Active Substance: RIVAROXABAN
     Dosage: 20 MG, QD
     Route: 048
  2. SPIRONOLACTONE. [Concomitant]
     Active Substance: SPIRONOLACTONE
     Dosage: 25 MG, UNK
  3. FUROSEMIDE. [Concomitant]
     Active Substance: FUROSEMIDE
     Dosage: 60 MG, BID
     Route: 048
  4. GABAPENTIN. [Concomitant]
     Active Substance: GABAPENTIN
  5. MAGNESIUM [Concomitant]
     Active Substance: MAGNESIUM
  6. LASIX [Concomitant]
     Active Substance: FUROSEMIDE
     Dosage: 80 MG, BID
     Dates: start: 20160615
  7. ASACOL [Concomitant]
     Active Substance: MESALAMINE
     Dosage: 400 UNK, TID
  8. AMLODIPINE [Concomitant]
     Active Substance: AMLODIPINE BESYLATE
     Dosage: 5 MG, QD
  9. SOTALOL. [Concomitant]
     Active Substance: SOTALOL
  10. CANDESARTAN. [Concomitant]
     Active Substance: CANDESARTAN
     Dosage: 16 MG, QHS
  11. LIPIDIL [Concomitant]
     Active Substance: FENOFIBRATE
     Dosage: 160 MG, QD
  12. MELATONIN [Concomitant]
     Active Substance: MELATONIN
  13. REPATHA [Suspect]
     Active Substance: EVOLOCUMAB
     Indication: HYPERLIPIDAEMIA
     Dosage: 140 MG/ML, Q2WK
     Route: 065
     Dates: start: 201801, end: 20181023
  14. MULTIVITAMIN [Concomitant]
     Active Substance: VITAMINS
  15. FENOFIBRATE. [Concomitant]
     Active Substance: FENOFIBRATE
  16. FLECAINIDE [Concomitant]
     Active Substance: FLECAINIDE
     Dosage: 75 MG, BID
  17. HYDROCHLOROTHIAZIDE. [Concomitant]
     Active Substance: HYDROCHLOROTHIAZIDE
     Dosage: 25 UNK, UNK
  18. CALCIUM [Concomitant]
     Active Substance: CALCIUM
  19. OMEGA 3 [Concomitant]
     Active Substance: OMEGA-3 FATTY ACIDS
  20. VITAMIN D [Concomitant]
     Active Substance: CHOLECALCIFEROL
  21. TYLENOL [Concomitant]
     Active Substance: ACETAMINOPHEN
  22. ATIVAN [Concomitant]
     Active Substance: LORAZEPAM
  23. XARELTO [Concomitant]
     Active Substance: RIVAROXABAN
     Dosage: 20 MG, QD
  24. BETAMETHASONE. [Concomitant]
     Active Substance: BETAMETHASONE
  25. 5-AMINOSALICYLIC ACID [Concomitant]
     Active Substance: MESALAMINE
     Dosage: 400 MG, BID
     Route: 048
  26. BISOPROLOL [Concomitant]
     Active Substance: BISOPROLOL
     Dosage: 5 MG, QD
  27. BISOPROLOL [Concomitant]
     Active Substance: BISOPROLOL
     Dosage: 2.5 MG, QD
  28. AMLODIPINE [Concomitant]
     Active Substance: AMLODIPINE BESYLATE
     Dosage: 10 MG, QD
  29. WELLBUTRIN [Concomitant]
     Active Substance: BUPROPION HYDROCHLORIDE
     Indication: DEPRESSION
     Dosage: 150 MG, UNK
  30. CLONAZEPAM. [Concomitant]
     Active Substance: CLONAZEPAM
     Dosage: 0.25 MG, BID
     Route: 048
  31. SEROQUEL [Concomitant]
     Active Substance: QUETIAPINE FUMARATE
     Dosage: UNK UNK (12.5-25MG), QHS
  32. COQ10 [Concomitant]
     Active Substance: UBIDECARENONE
  33. LASIX [Concomitant]
     Active Substance: FUROSEMIDE
     Dosage: 40 MG, QD
  34. BUPROPION. [Concomitant]
     Active Substance: BUPROPION
     Dosage: 150 MG, BID
     Route: 048
  35. SPIRONOLACTONE. [Concomitant]
     Active Substance: SPIRONOLACTONE
     Dosage: 12.5 MG, QD
     Dates: start: 20180117
  36. NORVASC [Concomitant]
     Active Substance: AMLODIPINE BESYLATE
     Dosage: 10 MG, UNK
  37. DIGOXIN. [Concomitant]
     Active Substance: DIGOXIN
     Dosage: 0.25 MG, QD
  38. LIPITOR [Concomitant]
     Active Substance: ATORVASTATIN CALCIUM
     Dosage: 10 MG, QD
  39. VERAPAMIL [Concomitant]
     Active Substance: VERAPAMIL HYDROCHLORIDE
     Dosage: 240 MG, QD
     Route: 048
  40. PREDNISONE. [Concomitant]
     Active Substance: PREDNISONE
     Dosage: 50 MG, QD ( FOR 5 DAYS THEN WEAN BY 5 MG PER DAY UNTIL 20 MG DAILY)

REACTIONS (5)
  - Autoimmune hepatitis [Recovering/Resolving]
  - Acute kidney injury [Recovering/Resolving]
  - Neuropathy peripheral [Unknown]
  - Diabetes mellitus [Recovering/Resolving]
  - Insomnia [Unknown]

NARRATIVE: CASE EVENT DATE: 20181015
